FAERS Safety Report 16820392 (Version 1)
Quarter: 2019Q3

REPORT INFORMATION
  Report Type: Spontaneous
  Country: GB (occurrence: GB)
  Receive Date: 20190918
  Receipt Date: 20190918
  Transmission Date: 20191005
  Serious: Yes (Other)
  Sender: FDA-Public Use
  Company Number: GB-ADVANZ PHARMA-201909000497

PATIENT

DRUGS (6)
  1. SERTRALINE [Concomitant]
     Active Substance: SERTRALINE HYDROCHLORIDE
     Dosage: UNK
  2. ACCRETE D3 [Concomitant]
     Active Substance: CALCIUM CARBONATE\CHOLECALCIFEROL
     Dosage: UNK
  3. ANHYDROUS MERCAPTOPURINE [Concomitant]
     Active Substance: MERCAPTOPURINE
     Dosage: UNK
  4. RISEDRONATE SODIUM. [Concomitant]
     Active Substance: RISEDRONATE SODIUM
     Dosage: UNK
  5. PREDNISOLONE. [Suspect]
     Active Substance: PREDNISOLONE
     Indication: COLITIS ULCERATIVE
     Dosage: TAPER 5MG OFF PER WEEK.
     Route: 048
     Dates: start: 20190821
  6. PENTASA [Concomitant]
     Active Substance: MESALAMINE
     Dosage: UNK

REACTIONS (6)
  - Abdominal distension [Not Recovered/Not Resolved]
  - Mood swings [Not Recovered/Not Resolved]
  - Irritability [Not Recovered/Not Resolved]
  - Depression [Not Recovered/Not Resolved]
  - Hunger [Not Recovered/Not Resolved]
  - Swelling face [Not Recovered/Not Resolved]

NARRATIVE: CASE EVENT DATE: 20190823
